FAERS Safety Report 5628047-8 (Version None)
Quarter: 2008Q1

REPORT INFORMATION
  Report Type: 
  Country: None (occurrence: None)
  Receive Date: 20080215
  Receipt Date: 20080208
  Transmission Date: 20080703
  Serious: Yes (Other)
  Sender: FDA-Public Use
  Company Number: US-ELI_LILLY_AND_COMPANY-US200802001882

PATIENT
  Sex: Female

DRUGS (1)
  1. HUMALOG [Suspect]

REACTIONS (2)
  - CEREBROVASCULAR ACCIDENT [None]
  - SPEECH DISORDER [None]
